FAERS Safety Report 8924561 (Version 1)
Quarter: 2012Q4

REPORT INFORMATION
  Report Type: 
  Country: CA (occurrence: CA)
  Receive Date: 20121126
  Receipt Date: 20121126
  Transmission Date: 20130627
  Serious: Yes (Other)
  Sender: FDA-Public Use
  Company Number: CA-ROCHE-1159962

PATIENT
  Sex: Female

DRUGS (2)
  1. XOLAIR [Suspect]
     Indication: PRODUCT USED FOR UNKNOWN INDICATION
     Route: 065
     Dates: start: 20120216
  2. ADVAIR [Concomitant]

REACTIONS (8)
  - Asthma [Unknown]
  - Hypersensitivity [Unknown]
  - Joint stiffness [Unknown]
  - Nasal congestion [Unknown]
  - Rash [Unknown]
  - Influenza like illness [Unknown]
  - Cough [Unknown]
  - Fatigue [Unknown]
